FAERS Safety Report 11605955 (Version 1)
Quarter: 2015Q4

REPORT INFORMATION
  Report Type: Spontaneous
  Country: US (occurrence: US)
  Receive Date: 20151007
  Receipt Date: 20151007
  Transmission Date: 20160304
  Serious: Yes (Death, Other)
  Sender: FDA-Public Use
  Company Number: US-GLAXOSMITHKLINE-US2015GSK142423

PATIENT
  Age: 76 Year
  Sex: Male

DRUGS (2)
  1. HYCAMTIN [Suspect]
     Active Substance: TOPOTECAN HYDROCHLORIDE
     Dosage: 4.5 MG, QD (0.24 MG STRENGTH)
     Route: 048
     Dates: start: 20150731
  2. HYCAMTIN [Suspect]
     Active Substance: TOPOTECAN HYDROCHLORIDE
     Indication: LUNG NEOPLASM MALIGNANT
     Dosage: 4.5 MG, QD (1 MG STRENGTH)
     Route: 048
     Dates: start: 20150731

REACTIONS (1)
  - Neoplasm malignant [Fatal]
